FAERS Safety Report 24618955 (Version 2)
Quarter: 2024Q4

REPORT INFORMATION
  Report Type: Spontaneous
  Country: US (occurrence: US)
  Receive Date: 20241114
  Receipt Date: 20241127
  Transmission Date: 20250114
  Serious: No
  Sender: BAYER HEALTHCARE PHARMACEUTICALS INC.
  Company Number: US-BAYER-2024A160945

PATIENT
  Age: 35 Year
  Sex: Female

DRUGS (1)
  1. MIRENA [Suspect]
     Active Substance: LEVONORGESTREL
     Dosage: 20?G/DAY
     Route: 015
     Dates: start: 20240905, end: 20241017

REACTIONS (4)
  - Device expulsion [Recovered/Resolved]
  - Genital haemorrhage [Recovered/Resolved]
  - Dyspareunia [Recovered/Resolved]
  - Device issue [None]

NARRATIVE: CASE EVENT DATE: 20240905
